FAERS Safety Report 9951695 (Version 2)
Quarter: 2014Q2

REPORT INFORMATION
  Report Type: Spontaneous
  Country: IT (occurrence: IT)
  Receive Date: 20140304
  Receipt Date: 20140410
  Transmission Date: 20141212
  Serious: Yes (Hospitalization)
  Sender: FDA-Public Use
  Company Number: IT-CELGENEUS-083-21660-14022822

PATIENT
  Age: 86 Year
  Sex: Male
  Weight: 93 kg

DRUGS (3)
  1. ABRAXANE [Suspect]
     Indication: PANCREATIC CARCINOMA
     Dosage: 125 MILLIGRAM
     Route: 041
     Dates: start: 20140126, end: 20140126
  2. GEMBIN [Concomitant]
     Indication: PANCREATIC CARCINOMA
     Dosage: 1200 MILLIGRAM
     Route: 041
     Dates: start: 20140126, end: 20140126
  3. TIKLID [Concomitant]
     Indication: ISCHAEMIC HEART DISEASE PROPHYLAXIS
     Route: 048

REACTIONS (1)
  - Ischaemic stroke [Unknown]
